FAERS Safety Report 5126503-2 (Version None)
Quarter: 2006Q4

REPORT INFORMATION
  Report Type: 
  Country: None (occurrence: None)
  Receive Date: 20061010
  Receipt Date: 20060927
  Transmission Date: 20070319
  Serious: Yes (Other)
  Sender: FDA-Public Use
  Company Number: 2006111213

PATIENT
  Age: 75 Year
  Sex: Female
  Weight: 66.6788 kg

DRUGS (5)
  1. LIPITOR [Suspect]
     Indication: BLOOD CHOLESTEROL INCREASED
     Dosage: 40 MG (40 MG, 1 IN 1 D), ORAL
     Route: 048
  2. ALL OTHER THERAPEUTIC PRODUCTS (ALL OTHER THERAPEUTIC PRODUCTS) [Concomitant]
  3. FOSAMAX [Concomitant]
  4. TIMOLOL MALEATE [Concomitant]
  5. PREDNISOLONE ACETATE [Concomitant]

REACTIONS (4)
  - CHOLECYSTECTOMY [None]
  - PRURITUS GENERALISED [None]
  - RASH [None]
  - SKIN DISORDER [None]
